FAERS Safety Report 8127444-9 (Version None)
Quarter: 2011Q4

REPORT INFORMATION
  Report Type: 
  Country: None (occurrence: None)
  Receive Date: 20111227
  Receipt Date: 20110913
  Transmission Date: 20120403
  Serious: No
  Sender: FDA-Public Use
  Company Number: PHEH2011US01791

PATIENT
  Age: 39 Year
  Sex: Female
  Weight: 55.8 kg

DRUGS (7)
  1. GILENYA [Suspect]
     Indication: MULTIPLE SCLEROSIS
     Dosage: 0.5 MG, DAILY, ORAL
     Route: 048
     Dates: start: 20110812
  2. CITALOPRAM HYDROBROMIDE [Concomitant]
  3. NUVIGIL [Concomitant]
  4. DITROPAN [Concomitant]
  5. VITAMIN D [Concomitant]
  6. BACLOFEN [Concomitant]
  7. ZOMIG [Concomitant]

REACTIONS (1)
  - FATIGUE [None]
